FAERS Safety Report 14896080 (Version 4)
Quarter: 2018Q3

REPORT INFORMATION
  Report Type: Report from Study
  Country: US (occurrence: US)
  Receive Date: 20180515
  Receipt Date: 20180709
  Transmission Date: 20181010
  Serious: Yes (Other)
  Sender: FDA-Public Use
  Company Number: US-PFIZER INC-2018014388

PATIENT
  Age: 76 Year
  Sex: Female

DRUGS (5)
  1. IBRANCE [Suspect]
     Active Substance: PALBOCICLIB
     Dosage: 125 MG, CYCLIC (DAILY, 21 DAYS ON/7 DAYS OFF)
     Route: 048
     Dates: start: 20180108
  2. FASLODEX [Concomitant]
     Active Substance: FULVESTRANT
     Dosage: UNK, MONTHLY
  3. IBRANCE [Suspect]
     Active Substance: PALBOCICLIB
     Dosage: 125 MG, CYCLIC (DAILY, 3 WEEKS ON/1 WEEK OFF)
     Route: 048
     Dates: start: 20180108, end: 20180423
  4. IBRANCE [Suspect]
     Active Substance: PALBOCICLIB
     Indication: BREAST CANCER FEMALE
     Dosage: 125 MG, CYCLIC (DAILY, 3 WEEKS ON/1 WEEK OFF)
     Route: 048
     Dates: start: 20170108
  5. CIPRO [Concomitant]
     Active Substance: CIPROFLOXACIN HYDROCHLORIDE
     Indication: STENT PLACEMENT
     Dosage: UNK

REACTIONS (10)
  - Dental necrosis [Recovered/Resolved]
  - Nausea [Recovering/Resolving]
  - Urinary tract infection [Recovering/Resolving]
  - Alopecia [Unknown]
  - Abdominal discomfort [Unknown]
  - Vomiting [Recovering/Resolving]
  - Soft tissue injury [Recovering/Resolving]
  - Gastric disorder [Recovering/Resolving]
  - Decreased appetite [Unknown]
  - Dry skin [Unknown]

NARRATIVE: CASE EVENT DATE: 2018
